FAERS Safety Report 11758639 (Version 1)
Quarter: 2015Q4

REPORT INFORMATION
  Report Type: Spontaneous
  Country: US (occurrence: US)
  Receive Date: 20151120
  Receipt Date: 20151120
  Transmission Date: 20160304
  Serious: Yes (Hospitalization)
  Sender: FDA-Public Use
  Company Number: US-B.I. PHARMACEUTICALS,INC./RIDGEFIELD-2015-BI-64559BP

PATIENT
  Age: 82 Year
  Sex: Male

DRUGS (1)
  1. PRADAXA [Suspect]
     Active Substance: DABIGATRAN ETEXILATE MESYLATE
     Indication: PRODUCT USED FOR UNKNOWN INDICATION
     Dosage: 150 MG
     Route: 048

REACTIONS (6)
  - Blood creatinine increased [Unknown]
  - Haemoglobin decreased [Unknown]
  - Haematemesis [Unknown]
  - Gastric haemorrhage [Unknown]
  - Activated partial thromboplastin time prolonged [Unknown]
  - Melaena [Unknown]

NARRATIVE: CASE EVENT DATE: 2015
